FAERS Safety Report 8508390-5 (Version None)
Quarter: 2012Q3

REPORT INFORMATION
  Report Type: 
  Country: None (occurrence: None)
  Receive Date: 20120713
  Receipt Date: 20120710
  Transmission Date: 20120928
  Serious: Yes (Hospitalization)
  Sender: FDA-Public Use
  Company Number: PHHY2012AU059404

PATIENT
  Sex: Female

DRUGS (1)
  1. FAMVIR [Suspect]
     Indication: ORAL HERPES
     Dosage: 1500 MG, QD
     Route: 048
     Dates: start: 20120707

REACTIONS (4)
  - HEADACHE [None]
  - SWELLING [None]
  - HYPOAESTHESIA [None]
  - HYPOAESTHESIA ORAL [None]
